FAERS Safety Report 19684596 (Version 1)
Quarter: 2021Q3

REPORT INFORMATION
  Report Type: Spontaneous
  Country: CA (occurrence: CA)
  Receive Date: 20210811
  Receipt Date: 20210811
  Transmission Date: 20211014
  Serious: Yes (Other)
  Sender: FDA-Public Use
  Company Number: NVSC2021CA177748

PATIENT
  Age: 52 Year
  Sex: Female

DRUGS (2)
  1. SANDOZ LANSOPRAZOLE [Suspect]
     Active Substance: LANSOPRAZOLE
     Dosage: UNK
     Route: 048
  2. SANDOZ LANSOPRAZOLE [Suspect]
     Active Substance: LANSOPRAZOLE
     Indication: PRODUCT USED FOR UNKNOWN INDICATION
     Dosage: UNK (DELAYED RELEASE)
     Route: 048

REACTIONS (3)
  - Haematemesis [Recovered/Resolved]
  - Gastric polyps [Recovered/Resolved]
  - Gastrointestinal haemorrhage [Recovered/Resolved]
